FAERS Safety Report 23642843 (Version 1)
Quarter: 2024Q1

REPORT INFORMATION
  Report Type: Spontaneous
  Country: US (occurrence: US)
  Receive Date: 20240318
  Receipt Date: 20240318
  Transmission Date: 20240409
  Serious: No
  Sender: FDA-Public Use
  Company Number: US-E2BLSMVVAL-SPO/USA/24/0003907

PATIENT
  Age: 51 Year
  Sex: Female

DRUGS (1)
  1. ZENATANE [Suspect]
     Active Substance: ISOTRETINOIN
     Indication: Product used for unknown indication
     Dates: start: 20240229, end: 20240229

REACTIONS (2)
  - Adverse event [Unknown]
  - Drug interaction [Unknown]

NARRATIVE: CASE EVENT DATE: 20240229
